FAERS Safety Report 7970222-1 (Version None)
Quarter: 2011Q4

REPORT INFORMATION
  Report Type: 
  Country: None (occurrence: None)
  Receive Date: 20111212
  Receipt Date: 20111202
  Transmission Date: 20120403
  Serious: Yes (Life-Threatening, Hospitalization)
  Sender: FDA-Public Use
  Company Number: JP-JNJFOC-20111106383

PATIENT
  Sex: Female

DRUGS (41)
  1. ETHAMBUTOL HYDROCHLORIDE [Suspect]
     Indication: PULMONARY TUBERCULOSIS
     Route: 048
     Dates: start: 20100303, end: 20100306
  2. CIPROFLOXACIN HYDROCHLORIDE [Concomitant]
     Indication: EXTRAPULMONARY TUBERCULOSIS
     Route: 065
  3. CEFAZOLIN SODIUM [Concomitant]
     Route: 048
     Dates: start: 20100214
  4. HUMULIN R [Concomitant]
     Route: 042
     Dates: start: 20100303, end: 20100311
  5. RIFADIN [Suspect]
     Indication: EXTRAPULMONARY TUBERCULOSIS
     Route: 065
     Dates: end: 20100301
  6. ETHAMBUTOL HYDROCHLORIDE [Suspect]
     Indication: EXTRAPULMONARY TUBERCULOSIS
     Route: 048
     Dates: start: 20100306, end: 20100309
  7. VERAPAMIL HCL [Concomitant]
     Route: 048
     Dates: start: 20100302
  8. LEVOFLOXACIN [Suspect]
     Indication: DISSEMINATED TUBERCULOSIS
     Route: 065
     Dates: start: 20100306, end: 20100309
  9. BACTRIM [Concomitant]
     Route: 048
     Dates: start: 20100217
  10. LASIX [Concomitant]
     Route: 042
     Dates: start: 20100303, end: 20100310
  11. ALENDRONATE SODIUM [Concomitant]
     Route: 048
  12. HICALIQ [Concomitant]
     Route: 041
     Dates: start: 20100222
  13. RHEUMATREX [Concomitant]
     Route: 048
  14. SODIUM BICARBONATE [Concomitant]
     Dosage: 3.36 G OR 5 G ONE DOSE PER DAY
     Route: 041
     Dates: start: 20100302
  15. LEVOFLOXACIN [Suspect]
     Route: 065
     Dates: start: 20100303, end: 20100306
  16. STREPTOMYCIN [Suspect]
     Indication: EXTRAPULMONARY TUBERCULOSIS
     Route: 042
     Dates: start: 20100226, end: 20100306
  17. STREPTOMYCIN [Suspect]
     Route: 042
     Dates: start: 20100306, end: 20100309
  18. STREPTOMYCIN [Suspect]
     Indication: PULMONARY TUBERCULOSIS
     Route: 042
     Dates: start: 20100306, end: 20100309
  19. DIGOXIN [Concomitant]
     Route: 048
     Dates: start: 20100302
  20. LANSOPRAZOLE [Concomitant]
     Route: 048
     Dates: start: 20100304
  21. AMINOLEBAN EN [Concomitant]
     Route: 048
     Dates: start: 20100220
  22. VITAJECT [Concomitant]
     Route: 041
     Dates: start: 20100223
  23. SODIUM BICARBONATE [Concomitant]
     Route: 041
     Dates: start: 20100302
  24. FENTANYL [Concomitant]
     Indication: PRODUCT USED FOR UNKNOWN INDICATION
     Route: 041
     Dates: start: 20100215, end: 20100309
  25. LEVOFLOXACIN [Suspect]
     Route: 065
     Dates: start: 20100303, end: 20100306
  26. RIFADIN [Suspect]
     Indication: PULMONARY TUBERCULOSIS
     Route: 065
     Dates: end: 20100301
  27. ETHAMBUTOL HYDROCHLORIDE [Suspect]
     Route: 048
     Dates: start: 20100303, end: 20100306
  28. RHEUMATREX [Concomitant]
     Route: 048
  29. FOLIC ACID [Concomitant]
     Route: 048
  30. MINERAL [Concomitant]
     Route: 041
     Dates: start: 20100222
  31. LEVOFLOXACIN [Suspect]
     Indication: PULMONARY TUBERCULOSIS
     Route: 065
     Dates: start: 20100306, end: 20100309
  32. STREPTOMYCIN [Suspect]
     Route: 042
     Dates: start: 20100226, end: 20100306
  33. CIPROFLOXACIN HYDROCHLORIDE [Concomitant]
     Indication: PULMONARY TUBERCULOSIS
     Route: 065
  34. ENSURE [Concomitant]
     Route: 048
     Dates: start: 20100220
  35. LEVOFLOXACIN [Suspect]
     Indication: EXTRAPULMONARY TUBERCULOSIS
     Route: 065
     Dates: start: 20100306, end: 20100309
  36. LEVOFLOXACIN [Suspect]
     Route: 065
     Dates: start: 20100303, end: 20100306
  37. ETHAMBUTOL HYDROCHLORIDE [Suspect]
     Route: 048
     Dates: start: 20100306, end: 20100309
  38. LACTULOSE [Concomitant]
     Route: 048
     Dates: start: 20100216
  39. PREDNISOLONE [Concomitant]
     Route: 042
     Dates: start: 20100305, end: 20100310
  40. DOPAMINE HCL [Concomitant]
     Route: 042
     Dates: start: 20100306, end: 20100309
  41. AMINOLEBAN [Concomitant]
     Route: 041
     Dates: start: 20100222

REACTIONS (2)
  - HEPATIC FUNCTION ABNORMAL [None]
  - RENAL IMPAIRMENT [None]
